FAERS Safety Report 24291601 (Version 1)
Quarter: 2024Q3

REPORT INFORMATION
  Report Type: Spontaneous
  Country: US (occurrence: None)
  Receive Date: 20240906
  Receipt Date: 20240906
  Transmission Date: 20241017
  Serious: No
  Sender: DOMPE FARMACEUTICI
  Company Number: US-FARMAPROD-202308-202309-2837

PATIENT
  Sex: Male
  Weight: 94.39 kg

DRUGS (15)
  1. OXERVATE [Suspect]
     Active Substance: CENEGERMIN-BKBJ
     Indication: Neurotrophic keratopathy
     Route: 047
     Dates: start: 20230830
  2. RESTASIS [Concomitant]
     Active Substance: CYCLOSPORINE
  3. FLUTICASONE PROPIONATE\SALMETEROL XINAFOATE [Concomitant]
     Active Substance: FLUTICASONE PROPIONATE\SALMETEROL XINAFOATE
  4. ALPRAZOLAM [Concomitant]
     Active Substance: ALPRAZOLAM
  5. PANTOPRAZOLE SODIUM [Concomitant]
     Active Substance: PANTOPRAZOLE SODIUM
  6. NUCALA [Concomitant]
     Active Substance: MEPOLIZUMAB
     Dosage: AUTO INJECTOR
  7. AMOXICILLIN\CLAVULANATE POTASSIUM [Concomitant]
     Active Substance: AMOXICILLIN\CLAVULANATE POTASSIUM
  8. AZITHROMYCIN [Concomitant]
     Active Substance: AZITHROMYCIN
  9. BENZONATATE [Concomitant]
     Active Substance: BENZONATATE
  10. MUPIROCIN [Concomitant]
     Active Substance: MUPIROCIN
  11. NAPROXEN [Concomitant]
     Active Substance: NAPROXEN
  12. MESALAMINE [Concomitant]
     Active Substance: MESALAMINE
  13. HUMIRA [Concomitant]
     Active Substance: ADALIMUMAB
     Dosage: (CF) PEN 40MG/0.4ML PEN INJECTOR KIT
  14. FINASTERIDE [Concomitant]
     Active Substance: FINASTERIDE
  15. WIXELA INHUB [Concomitant]
     Active Substance: FLUTICASONE PROPIONATE\SALMETEROL XINAFOATE
     Dosage: 500-50 MCG BLISTER WITH DEVICE.

REACTIONS (2)
  - Intentional product misuse [Unknown]
  - Product dose omission issue [Unknown]
